FAERS Safety Report 7782157-8 (Version None)
Quarter: 2011Q3

REPORT INFORMATION
  Report Type: 
  Country: None (occurrence: None)
  Receive Date: 20110927
  Receipt Date: 20110920
  Transmission Date: 20111222
  Serious: Yes (Hospitalization)
  Sender: FDA-Public Use
  Company Number: DE-BAYER-2011-088584

PATIENT
  Age: 50 Year
  Sex: Female
  Weight: 76 kg

DRUGS (4)
  1. LIDOCAINE HCL [Suspect]
     Indication: INFILTRATION ANAESTHESIA
     Dosage: UNK
     Dates: start: 20110131
  2. LEVOFLOXACIN [Suspect]
     Indication: UPPER RESPIRATORY TRACT INFECTION
     Dosage: UNK
     Route: 048
     Dates: start: 20110117, end: 20110124
  3. CIPROFLOXACIN [Suspect]
     Indication: UPPER RESPIRATORY TRACT INFECTION
     Dosage: UNK
     Route: 048
     Dates: start: 20110125, end: 20110128
  4. BUPIVACAIN [Suspect]
     Indication: INFILTRATION ANAESTHESIA
     Dosage: UNK
     Dates: start: 20110131

REACTIONS (3)
  - HAEMATOMA [None]
  - UTERINE HAEMORRHAGE [None]
  - THROMBOCYTOPENIA [None]
